FAERS Safety Report 18648424 (Version 1)
Quarter: 2020Q4

REPORT INFORMATION
  Report Type: Spontaneous
  Country: US (occurrence: US)
  Receive Date: 20201222
  Receipt Date: 20201222
  Transmission Date: 20210114
  Serious: No
  Sender: FDA-Public Use
  Company Number: US-VERTEX PHARMACEUTICALS-2020-024812

PATIENT
  Sex: Female
  Weight: 65 kg

DRUGS (2)
  1. TRIKAFTA [Suspect]
     Active Substance: ELEXACAFTOR\IVACAFTOR\TEZACAFTOR
     Indication: CYSTIC FIBROSIS
     Dosage: 2 TABS (ELXA100MG/YTEZA50MG/IVA75MG) IN AM AND 1 TAB (IVA150MG) IN PM,BID
     Route: 048
     Dates: start: 20191230
  2. TOBI [Concomitant]
     Active Substance: TOBRAMYCIN

REACTIONS (1)
  - Bacterial disease carrier [Unknown]

NARRATIVE: CASE EVENT DATE: 2020
